FAERS Safety Report 6978600-4 (Version None)
Quarter: 2010Q3

REPORT INFORMATION
  Report Type: 
  Country: None (occurrence: None)
  Receive Date: 20100913
  Receipt Date: 20100902
  Transmission Date: 20110219
  Serious: Yes (Other)
  Sender: FDA-Public Use
  Company Number: B0673687A

PATIENT
  Sex: Female

DRUGS (1)
  1. CIGANON CQ1 [Suspect]
     Dosage: 1PAT PER DAY
     Route: 062
     Dates: start: 20100828, end: 20100901

REACTIONS (2)
  - LOSS OF CONSCIOUSNESS [None]
  - MALAISE [None]
